FAERS Safety Report 13887878 (Version 1)
Quarter: 2017Q3

REPORT INFORMATION
  Report Type: Spontaneous
  Country: US (occurrence: None)
  Receive Date: 20170816
  Receipt Date: 20170816
  Transmission Date: 20171127
  Serious: No
  Sender: FDA-Public Use
  Company Number: None

PATIENT
  Age: 40 Year
  Sex: Male

DRUGS (1)
  1. NINLARO [Suspect]
     Active Substance: IXAZOMIB
     Indication: PLASMA CELL MYELOMA
     Route: 048
     Dates: start: 20170814

REACTIONS (4)
  - Nasopharyngitis [None]
  - Cough [None]
  - Eye disorder [None]
  - Rhinorrhoea [None]

NARRATIVE: CASE EVENT DATE: 20170814
